FAERS Safety Report 5733078-3 (Version None)
Quarter: 2008Q2

REPORT INFORMATION
  Report Type: 
  Country: None (occurrence: None)
  Receive Date: 20080509
  Receipt Date: 20080506
  Transmission Date: 20081010
  Serious: Yes (Death, Other)
  Sender: FDA-Public Use
  Company Number: US-BRISTOL-MYERS SQUIBB COMPANY-14116503

PATIENT
  Age: 68 Year
  Sex: Female

DRUGS (8)
  1. IXEMPRA KIT [Suspect]
     Indication: BREAST CANCER METASTATIC
     Dosage: FIRST DOSE OF IXEMPRA
     Route: 042
     Dates: start: 20080305
  2. CARDIZEM [Concomitant]
  3. CALCIUM [Concomitant]
  4. LORATADINE [Concomitant]
  5. DEXAMETHASONE [Concomitant]
  6. TYLENOL [Concomitant]
  7. VITAMIN E [Concomitant]
  8. WARFARIN SODIUM [Concomitant]

REACTIONS (3)
  - NEUTROPENIA [None]
  - RENAL FAILURE [None]
  - SEPSIS [None]
